FAERS Safety Report 7228773-3 (Version None)
Quarter: 2011Q1

REPORT INFORMATION
  Report Type: 
  Country: None (occurrence: None)
  Receive Date: 20110117
  Receipt Date: 20110106
  Transmission Date: 20110831
  Serious: No
  Sender: FDA-Public Use
  Company Number: US-BIOGENIDEC-2011BI001318

PATIENT
  Sex: Female

DRUGS (3)
  1. AVONEX [Suspect]
     Route: 030
     Dates: start: 20100615
  2. AVONEX [Suspect]
     Route: 030
     Dates: start: 20080301
  3. AVONEX [Suspect]
     Indication: MULTIPLE SCLEROSIS
     Route: 030
     Dates: start: 20071001

REACTIONS (2)
  - INJECTION SITE EXTRAVASATION [None]
  - INJECTION SITE ERYTHEMA [None]
